FAERS Safety Report 19225806 (Version 1)
Quarter: 2021Q2

REPORT INFORMATION
  Report Type: Spontaneous
  Country: US (occurrence: US)
  Receive Date: 20210506
  Receipt Date: 20210506
  Transmission Date: 20210717
  Serious: No
  Sender: FDA-Public Use
  Company Number: US-PFIZER INC-2021438101

PATIENT
  Age: 10 Year
  Sex: Female

DRUGS (2)
  1. IBRANCE [Suspect]
     Active Substance: PALBOCICLIB
     Indication: BONE CANCER
  2. IBRANCE [Suspect]
     Active Substance: PALBOCICLIB
     Indication: OSTEOSARCOMA
     Dosage: 100 MG, CYCLIC [DAILY FOR 14 DOSES, 28 DAY SUPPLY, TAKE 1 CAPSULE (100 MG TOTAL)]
     Route: 048

REACTIONS (2)
  - Abdominal pain upper [Unknown]
  - Off label use [Unknown]
